FAERS Safety Report 16839561 (Version 1)
Quarter: 2019Q3

REPORT INFORMATION
  Report Type: Spontaneous
  Country: US (occurrence: US)
  Receive Date: 20190731
  Receipt Date: 20190731
  Transmission Date: 20191005
  Serious: Yes (Other)
  Sender: FDA-Public Use
  Company Number: None

PATIENT
  Age: 55 Year
  Sex: Male

DRUGS (16)
  1. ALBUTEROL HFA [Concomitant]
     Active Substance: ALBUTEROL SULFATE
  2. ASPIRIN. [Concomitant]
     Active Substance: ASPIRIN
  3. BENZONATATE. [Concomitant]
     Active Substance: BENZONATATE
  4. SILDENAFIL. [Concomitant]
     Active Substance: SILDENAFIL
  5. GABAPENTIN. [Concomitant]
     Active Substance: GABAPENTIN
  6. PGE1 [Concomitant]
  7. PAPAVERINE-PHENTOLAMINE [Concomitant]
  8. TORSEMIDE. [Concomitant]
     Active Substance: TORSEMIDE
  9. OPSUMIT [Suspect]
     Active Substance: MACITENTAN
     Indication: PULMONARY HYPERTENSION
     Route: 048
     Dates: start: 201905
  10. COREG [Concomitant]
     Active Substance: CARVEDILOL
  11. ADVAIR DISKUS [Concomitant]
     Active Substance: FLUTICASONE PROPIONATE\SALMETEROL XINAFOATE
  12. ZOLOFT [Concomitant]
     Active Substance: SERTRALINE HYDROCHLORIDE
  13. LOSARTAN. [Concomitant]
     Active Substance: LOSARTAN
  14. MVI [Concomitant]
     Active Substance: VITAMINS
  15. ZOCOR [Concomitant]
     Active Substance: SIMVASTATIN
  16. EPIPEN [Concomitant]
     Active Substance: EPINEPHRINE

REACTIONS (5)
  - Abdominal pain [None]
  - Melaena [None]
  - Gastroenteritis viral [None]
  - Diarrhoea [None]
  - Vomiting [None]

NARRATIVE: CASE EVENT DATE: 20190728
